FAERS Safety Report 7895837-0 (Version None)
Quarter: 2011Q4

REPORT INFORMATION
  Report Type: 
  Country: None (occurrence: None)
  Receive Date: 20111106
  Receipt Date: 20110831
  Transmission Date: 20120403
  Serious: No
  Sender: FDA-Public Use
  Company Number: US-AMGEN-USASP2011044733

PATIENT
  Age: 63 Year
  Sex: Female

DRUGS (2)
  1. ENBREL [Suspect]
     Indication: RHEUMATOID ARTHRITIS
     Dosage: 25 MG, 2 TIMES/WK
     Dates: start: 20001101, end: 20110825
  2. METHOTREXATE [Concomitant]
     Dosage: UNK
     Dates: start: 20001101

REACTIONS (3)
  - OROPHARYNGEAL PAIN [None]
  - NASAL CONGESTION [None]
  - RHINORRHOEA [None]
